FAERS Safety Report 9498546 (Version 1)
Quarter: 2013Q3

REPORT INFORMATION
  Report Type: Report from Study
  Country: CA (occurrence: CA)
  Receive Date: 20130904
  Receipt Date: 20130904
  Transmission Date: 20140515
  Serious: Yes (Hospitalization, Other)
  Sender: FDA-Public Use
  Company Number: CA-ABBOTT-13P-028-1139951-00

PATIENT
  Age: 33 Year
  Sex: Female
  Weight: 77.18 kg

DRUGS (4)
  1. HUMIRA [Suspect]
     Indication: CROHN^S DISEASE
     Route: 058
     Dates: start: 20090226, end: 2013
  2. HUMIRA [Suspect]
     Route: 058
     Dates: start: 20130725
  3. VITAMIN B12 [Concomitant]
     Indication: ANAEMIA
     Dosage: QMT
     Route: 058
  4. IMURAN [Concomitant]
     Indication: CROHN^S DISEASE
     Dosage: QD
     Route: 048

REACTIONS (7)
  - Adhesion [Unknown]
  - Anastomotic complication [Unknown]
  - Abscess intestinal [Unknown]
  - Pulmonary embolism [Recovered/Resolved]
  - Thrombosis [Recovered/Resolved]
  - Pain [Recovered/Resolved]
  - Pneumonia [Recovered/Resolved]
